FAERS Safety Report 5993349-2 (Version None)
Quarter: 2008Q4

REPORT INFORMATION
  Report Type: 
  Country: None (occurrence: None)
  Receive Date: 20081212
  Receipt Date: 20081209
  Transmission Date: 20090506
  Serious: Yes (Hospitalization)
  Sender: FDA-Public Use
  Company Number: US-BRISTOL-MYERS SQUIBB COMPANY-14026710

PATIENT
  Age: 85 Year
  Sex: Male
  Weight: 80 kg

DRUGS (16)
  1. PACLITAXEL [Suspect]
     Indication: NON-SMALL CELL LUNG CANCER
     Dosage: CUMULATIVE DOSE OF 398 MG.
     Route: 042
     Dates: start: 20071130
  2. CARBOPLATIN [Suspect]
     Indication: NON-SMALL CELL LUNG CANCER
     Dosage: UNIT DOSE AUC 6
     Route: 042
     Dates: start: 20071130
  3. CP-751,871 [Suspect]
     Indication: NON-SMALL CELL LUNG CANCER
     Route: 042
     Dates: start: 20071130
  4. DIGOXIN [Suspect]
     Dosage: INTERRUPETED ON 12DEC07.
     Route: 048
     Dates: start: 20020101, end: 20071212
  5. DIOVAN HCT [Concomitant]
     Route: 048
     Dates: start: 20020101, end: 20071208
  6. FOSAMAX [Concomitant]
     Route: 048
     Dates: start: 20020101
  7. LEVOTHYROXINE SODIUM [Concomitant]
     Route: 048
     Dates: start: 19970101
  8. NORVASC [Concomitant]
     Route: 048
     Dates: start: 20020101
  9. OMEPRAZOLE [Concomitant]
     Route: 048
     Dates: start: 19970101
  10. PREDNISONE TAB [Concomitant]
     Route: 048
     Dates: start: 20050101
  11. VITAMIN D [Concomitant]
     Route: 048
     Dates: start: 20020101
  12. XOPENEX [Concomitant]
     Route: 048
     Dates: start: 20071112
  13. ZETIA [Concomitant]
     Route: 048
     Dates: start: 20020101
  14. LUTEIN [Concomitant]
     Route: 048
     Dates: start: 20071001, end: 20071212
  15. LORAZEPAM [Concomitant]
     Route: 048
     Dates: start: 20071001
  16. AMBIEN [Concomitant]
     Route: 048
     Dates: start: 20071001

REACTIONS (12)
  - AGITATION [None]
  - BRADYCARDIA [None]
  - CARDIAC PACEMAKER REPLACEMENT [None]
  - CONFUSIONAL STATE [None]
  - DEHYDRATION [None]
  - MEMORY IMPAIRMENT [None]
  - MENTAL STATUS CHANGES [None]
  - MUCOSAL INFLAMMATION [None]
  - NEUTROPENIA [None]
  - OVERDOSE [None]
  - SOMNOLENCE [None]
  - WHITE BLOOD CELL COUNT DECREASED [None]
